FAERS Safety Report 9250770 (Version 1)
Quarter: 2013Q1

REPORT INFORMATION
  Report Type: Spontaneous
  Country: US (occurrence: None)
  Receive Date: 20130305
  Receipt Date: 20130305
  Transmission Date: 20140127
  Serious: No
  Sender: FDA-Public Use
  Company Number: 163-21880-12042580

PATIENT
  Age: 68 Year
  Sex: Female
  Weight: 60.78 kg

DRUGS (9)
  1. REVLIMID (LENALIDOMIDE) (CAPSULES) [Suspect]
     Indication: MYELODYSPLASTIC SYNDROME
     Route: 048
     Dates: start: 201008, end: 20120606
  2. FUROSEMIDE (FUROSEMIDE) [Suspect]
     Indication: OEDEMA
     Route: 048
     Dates: start: 20120516, end: 20120531
  3. ASPIRIN(ACETYLSALICYLIC ACID) [Concomitant]
  4. MAGNESIUM SULFATE (MAGNESIUM SULFATE) [Concomitant]
  5. PREDNISONE(PREDNISONE) [Concomitant]
  6. KCL (POTASSIUM CHLORIDE) [Concomitant]
  7. LASIX (FUROSEMIDE) [Concomitant]
  8. PROCRIT [Concomitant]
  9. PACKED RED BLOOD CELLS (BLOOD AND RELATED PRODUCTS) [Concomitant]

REACTIONS (3)
  - Neutropenia [None]
  - Thrombocytopenia [None]
  - Paraesthesia [None]
